FAERS Safety Report 5335537-4 (Version None)
Quarter: 2007Q2

REPORT INFORMATION
  Report Type: 
  Country: None (occurrence: None)
  Receive Date: 20070522
  Receipt Date: 20070515
  Transmission Date: 20071010
  Serious: Yes (Death, Hospitalization, Other)
  Sender: FDA-Public Use
  Company Number: 163-21880-06120352

PATIENT
  Age: 75 Year
  Sex: Male

DRUGS (10)
  1. REVLIMID [Suspect]
     Indication: MULTIPLE MYELOMA
     Dosage: 25 MG, 1 IN 1 D, ORAL
     Route: 048
     Dates: start: 20061114, end: 20061129
  2. DECADRON [Concomitant]
  3. OSCAL (CALCIUM CARBONATE) [Concomitant]
  4. LIPITOR [Concomitant]
  5. CALAN [Concomitant]
  6. VASOTEC [Concomitant]
  7. COUMADIN [Concomitant]
  8. ZOMETA [Concomitant]
  9. LANTUS [Concomitant]
  10. FOLIC ACID [Concomitant]

REACTIONS (7)
  - ALPHA HAEMOLYTIC STREPTOCOCCAL INFECTION [None]
  - EPISTAXIS [None]
  - PANCYTOPENIA [None]
  - PULMONARY EMBOLISM [None]
  - PURPURA [None]
  - SEPSIS [None]
  - STAPHYLOCOCCAL INFECTION [None]
